FAERS Safety Report 9129687 (Version 1)
Quarter: 2013Q1

REPORT INFORMATION
  Report Type: Report from Study
  Country: CM (occurrence: CM)
  Receive Date: 20130125
  Receipt Date: 20130125
  Transmission Date: 20140127
  Serious: Yes (Other)
  Sender: FDA-Public Use
  Company Number: CM-ABBOTT-13P-027-1037766-00

PATIENT
  Age: 32 Year
  Sex: Female

DRUGS (2)
  1. ALUVIA [Suspect]
     Indication: HIV INFECTION
     Route: 048
     Dates: start: 20110723
  2. TRUVADA [Concomitant]
     Indication: HIV INFECTION
     Route: 048
     Dates: start: 20110723

REACTIONS (1)
  - Placenta praevia [Recovered/Resolved]
